FAERS Safety Report 13100927 (Version 1)
Quarter: 2017Q1

REPORT INFORMATION
  Report Type: Report from Study
  Country: ES (occurrence: ES)
  Receive Date: 20170110
  Receipt Date: 20170110
  Transmission Date: 20170428
  Serious: Yes (Hospitalization, Other)
  Sender: FDA-Public Use
  Company Number: ES-PFIZER INC-2017005472

PATIENT
  Age: 65 Year
  Sex: Female

DRUGS (2)
  1. RAPAMUNE [Suspect]
     Active Substance: SIROLIMUS
     Indication: RENAL TRANSPLANT
     Dosage: 4 MG, 1X/DAY
     Route: 048
     Dates: start: 201502, end: 20150811
  2. ITRACONAZOL [Interacting]
     Active Substance: ITRACONAZOLE
     Indication: TINEA CAPITIS
     Dosage: UNK
     Route: 048
     Dates: start: 2015, end: 20150811

REACTIONS (5)
  - Drug interaction [Recovered/Resolved]
  - Acute kidney injury [Recovered/Resolved]
  - Hypokalaemia [Unknown]
  - Immunosuppressant drug level increased [Recovered/Resolved]
  - Metabolic alkalosis [Unknown]

NARRATIVE: CASE EVENT DATE: 20150811
